FAERS Safety Report 7231008-9 (Version None)
Quarter: 2011Q1

REPORT INFORMATION
  Report Type: 
  Country: None (occurrence: None)
  Receive Date: 20110118
  Receipt Date: 20110112
  Transmission Date: 20110831
  Serious: Yes (Other)
  Sender: FDA-Public Use
  Company Number: DE-BRISTOL-MYERS SQUIBB COMPANY-14020762

PATIENT
  Age: 38 Year
  Sex: Female
  Weight: 107 kg

DRUGS (3)
  1. ORENCIA [Suspect]
     Indication: RHEUMATOID ARTHRITIS
     Dosage: THERAPY LAST DATE 28AUG2007.
     Route: 058
     Dates: start: 20070731
  2. RITUXIMAB [Concomitant]
  3. PREDNISOLONE [Concomitant]
     Indication: RHEUMATOID ARTHRITIS
     Dates: start: 20030101

REACTIONS (4)
  - NORMAL NEWBORN [None]
  - CAESAREAN SECTION [None]
  - GESTATIONAL DIABETES [None]
  - PREGNANCY [None]
